FAERS Safety Report 7736803-5 (Version None)
Quarter: 2011Q3

REPORT INFORMATION
  Report Type: 
  Country: None (occurrence: None)
  Receive Date: 20110908
  Receipt Date: 20110905
  Transmission Date: 20111222
  Serious: Yes (Death, Other)
  Sender: FDA-Public Use
  Company Number: PHHY2011IN78929

PATIENT
  Sex: Male

DRUGS (3)
  1. MYCOFIT [Concomitant]
     Dosage: 5000 MG, BID
     Route: 048
  2. TACSANT [Concomitant]
     Indication: TRANSPLANT
     Dosage: UNK UKN, UNK
     Dates: start: 20110711
  3. MYCOPHENOLIC ACID [Suspect]
     Dosage: UNK UKN, UNK

REACTIONS (3)
  - DEATH [None]
  - DIARRHOEA [None]
  - WOUND DEHISCENCE [None]
